FAERS Safety Report 15712163 (Version 2)
Quarter: 2019Q1

REPORT INFORMATION
  Report Type: Spontaneous
  Country: BR (occurrence: BR)
  Receive Date: 20181212
  Receipt Date: 20190129
  Transmission Date: 20190417
  Serious: Yes (Hospitalization, Other)
  Sender: FDA-Public Use
  Company Number: BR-AMGEN-BRASP2018172841

PATIENT
  Age: 58 Year
  Sex: Female

DRUGS (3)
  1. ENBREL [Suspect]
     Active Substance: ETANERCEPT
     Indication: ARTHRITIS
     Dosage: 50 MG, 1X/WEEK
     Route: 058
     Dates: start: 2013, end: 2016
  2. ENBREL [Suspect]
     Active Substance: ETANERCEPT
     Dosage: 50 MG, 1X/WEEK
     Route: 058
     Dates: start: 20181129
  3. ENBREL [Suspect]
     Active Substance: ETANERCEPT
     Indication: OSTEOARTHRITIS
     Dosage: 50 MG, 1X/WEEK
     Route: 058
     Dates: start: 201810

REACTIONS (11)
  - Wrist fracture [Recovered/Resolved]
  - Condition aggravated [Not Recovered/Not Resolved]
  - Femur fracture [Recovered/Resolved]
  - Wrong technique in product usage process [Unknown]
  - Vomiting [Recovered/Resolved]
  - Fall [Recovered/Resolved]
  - Osteoporosis [Not Recovered/Not Resolved]
  - Prescription drug used without a prescription [Unknown]
  - Drug ineffective [Recovered/Resolved]
  - Eye inflammation [Not Recovered/Not Resolved]
  - Upper limb fracture [Recovered/Resolved]

NARRATIVE: CASE EVENT DATE: 2013
